FAERS Safety Report 7112763-5 (Version None)
Quarter: 2010Q4

REPORT INFORMATION
  Report Type: 
  Country: None (occurrence: None)
  Receive Date: 20101119
  Receipt Date: 20091109
  Transmission Date: 20110411
  Serious: No
  Sender: FDA-Public Use
  Company Number: US-TEVA-213742USA

PATIENT
  Age: 81 Year
  Sex: Female

DRUGS (2)
  1. ALBUTEROL SULFATE AUTOHALER [Suspect]
     Dosage: 2 PUFFS
     Route: 055
     Dates: start: 20090729
  2. CAPTOPRIL [Concomitant]

REACTIONS (1)
  - DYSPNOEA [None]
